FAERS Safety Report 4528335-2 (Version None)
Quarter: 2004Q4

REPORT INFORMATION
  Report Type: 
  Country: None (occurrence: None)
  Receive Date: 20041130
  Receipt Date: 20040812
  Transmission Date: 20050328
  Serious: No
  Sender: FDA-Public Use
  Company Number: WAES 0408USA01101

PATIENT
  Age: 50 Year
  Sex: Male
  Weight: 83.9154 kg

DRUGS (5)
  1. ZETIA [Suspect]
     Indication: HYPERCHOLESTEROLAEMIA
     Dosage: 10 MG DAILY PO
     Route: 048
     Dates: start: 20031201
  2. COZAAR [Concomitant]
  3. PROPECIA [Concomitant]
  4. REMICADE [Concomitant]
  5. FOLIC ACID [Concomitant]

REACTIONS (2)
  - CHOLELITHIASIS [None]
  - LIVER FUNCTION TEST ABNORMAL [None]
